FAERS Safety Report 8837942 (Version 2)
Quarter: 2012Q4

REPORT INFORMATION
  Report Type: 
  Country: US (occurrence: US)
  Receive Date: 20121012
  Receipt Date: 20121105
  Transmission Date: 20130627
  Serious: Yes (Hospitalization)
  Sender: FDA-Public Use
  Company Number: US-PFIZER INC-2012254473

PATIENT
  Age: 50 Year
  Sex: Female
  Weight: 97.05 kg

DRUGS (6)
  1. CHANTIX [Suspect]
     Indication: SMOKING CESSATION THERAPY
     Dosage: UNK
     Dates: start: 20120602, end: 2012
  2. CHANTIX [Suspect]
     Dosage: 1 mg, 2x/day
     Dates: start: 2012
  3. PROTONIX [Concomitant]
     Indication: GASTRIC DISORDER
     Dosage: 40 mg, 2x/day
  4. PROTONIX [Concomitant]
     Indication: HERNIA
  5. PROTONIX [Concomitant]
     Indication: GASTROESOPHAGEAL REFLUX DISEASE
  6. MOBIC [Concomitant]
     Indication: ARTHRITIS
     Dosage: 20 mg, daily

REACTIONS (1)
  - Spinal pain [Unknown]
